FAERS Safety Report 5164431-7 (Version None)
Quarter: 2006Q4

REPORT INFORMATION
  Report Type: 
  Country: None (occurrence: None)
  Receive Date: 20061205
  Receipt Date: 20061127
  Transmission Date: 20070319
  Serious: Yes (Hospitalization)
  Sender: FDA-Public Use
  Company Number: FR-JNJFOC-20061106072

PATIENT
  Age: 64 Year
  Sex: Male

DRUGS (7)
  1. DAKTARIN [Suspect]
     Indication: ORAL CANDIDIASIS
     Route: 048
  2. COUMADIN [Interacting]
     Indication: PORTAL VEIN THROMBOSIS
     Route: 048
  3. BRICANYL [Concomitant]
     Route: 065
  4. KENZEN [Concomitant]
     Indication: HYPERTENSION
     Route: 065
  5. MOXIFLOXACIN HYDROCHLORIDE [Concomitant]
     Indication: RESPIRATORY TRACT INFECTION
     Route: 065
  6. SYMBICORT [Concomitant]
     Indication: CHRONIC OBSTRUCTIVE PULMONARY DISEASE
     Route: 065
  7. CRESTOR [Concomitant]
     Indication: RESPIRATORY TRACT INFECTION
     Route: 065

REACTIONS (3)
  - DRUG INTERACTION [None]
  - HAEMATURIA [None]
  - SELF-MEDICATION [None]
